FAERS Safety Report 8977405 (Version 1)
Quarter: 2012Q4

REPORT INFORMATION
  Report Type: 
  Country: DE (occurrence: DE)
  Receive Date: 20121219
  Receipt Date: 20121219
  Transmission Date: 20130627
  Serious: Yes (Death, Other)
  Sender: FDA-Public Use
  Company Number: DE-ELI_LILLY_AND_COMPANY-DE201210000415

PATIENT
  Age: 96 Year
  Sex: Female

DRUGS (17)
  1. ZYPREXA [Suspect]
     Indication: DEMENTIA
     Dosage: 2.5 mg, each morning
     Route: 048
     Dates: start: 20120901
  2. ZYPREXA [Suspect]
     Dosage: 2.5 mg, each evening
     Route: 048
     Dates: start: 20120910
  3. RAMIPRIL [Concomitant]
     Dosage: 2.5 mg, unknown
  4. DECORTIN [Concomitant]
     Dosage: 5 mg, unknown
  5. OMEPRAL [Concomitant]
     Dosage: 20 mg, unknown
  6. NOVALGIN [Concomitant]
     Dosage: 1 DF, unknown
  7. DIPIPERON [Concomitant]
     Dosage: 40 mg, unknown
     Dates: start: 20120831
  8. ATIVAN [Concomitant]
     Dosage: 2 mg, unknown
  9. TAVOR [Concomitant]
     Dosage: 1 mg, unknown
     Dates: start: 20071109
  10. SEROQUEL [Concomitant]
     Dosage: 25 mg, unknown
     Dates: start: 20071109
  11. HALDOL [Concomitant]
     Dosage: 1 DF, unknown
     Dates: start: 20071119
  12. OSTEOPLUS                          /00944201/ [Concomitant]
     Dosage: 1 DF, unknown
  13. ALENDRON MEPHA [Concomitant]
     Dosage: 70 mg, weekly (1/W)
  14. MOVICOL [Concomitant]
     Dosage: 1 DF, unknown
  15. ASS [Concomitant]
     Dosage: 100 mg, unknown
  16. NOVAMINSULFON [Concomitant]
     Dosage: 500 mg, unknown
     Dates: start: 20120706
  17. IBUPROFEN [Concomitant]
     Dosage: 400 mg, unknown
     Dates: start: 20121026

REACTIONS (14)
  - Death [Fatal]
  - Pleural effusion [Not Recovered/Not Resolved]
  - Dyspnoea [Not Recovered/Not Resolved]
  - Bladder cyst [Not Recovered/Not Resolved]
  - Dysphagia [Not Recovered/Not Resolved]
  - Disorientation [Not Recovered/Not Resolved]
  - Mood altered [Not Recovered/Not Resolved]
  - Speech disorder [Not Recovered/Not Resolved]
  - Salivary hypersecretion [Not Recovered/Not Resolved]
  - Tongue paralysis [Not Recovered/Not Resolved]
  - Fatigue [Unknown]
  - Nausea [Not Recovered/Not Resolved]
  - Head titubation [Not Recovered/Not Resolved]
  - Gait disturbance [Not Recovered/Not Resolved]
